FAERS Safety Report 7586422-9 (Version None)
Quarter: 2011Q3

REPORT INFORMATION
  Report Type: 
  Country: None (occurrence: None)
  Receive Date: 20110701
  Receipt Date: 20110622
  Transmission Date: 20111222
  Serious: Yes (Death)
  Sender: FDA-Public Use
  Company Number: B0716525A

PATIENT
  Sex: Male
  Weight: 84 kg

DRUGS (3)
  1. PAROXETINE HCL [Suspect]
     Indication: DEPRESSION
     Dosage: 40MG PER DAY
     Route: 065
  2. ABILIFY [Concomitant]
     Dosage: 30MG AT NIGHT
     Dates: start: 20110201, end: 20110215
  3. DEPAKENE [Concomitant]
     Dates: start: 20110109, end: 20110215

REACTIONS (1)
  - COMPLETED SUICIDE [None]
